FAERS Safety Report 9729997 (Version 1)
Quarter: 2013Q4

REPORT INFORMATION
  Report Type: Spontaneous
  Country: US (occurrence: US)
  Receive Date: 20131204
  Receipt Date: 20131204
  Transmission Date: 20140711
  Serious: No
  Sender: FDA-Public Use
  Company Number: US-GILEAD-2013-0088884

PATIENT
  Sex: Male

DRUGS (1)
  1. TRUVADA [Suspect]
     Indication: PRODUCT USED FOR UNKNOWN INDICATION
     Dosage: UNK
     Dates: start: 20131019

REACTIONS (7)
  - Blood pressure increased [Unknown]
  - Influenza like illness [Unknown]
  - Hyperglycaemia [Unknown]
  - Asthenia [Unknown]
  - Pain [Unknown]
  - Headache [Unknown]
  - Blood triglycerides increased [Unknown]
